FAERS Safety Report 16519791 (Version 1)
Quarter: 2019Q3

REPORT INFORMATION
  Report Type: Report from Study
  Country: US (occurrence: US)
  Receive Date: 20190702
  Receipt Date: 20190702
  Transmission Date: 20191004
  Serious: Yes (Other)
  Sender: FDA-Public Use
  Company Number: US-JNJFOC-20190628722

PATIENT
  Age: 35 Year
  Sex: Male

DRUGS (1)
  1. TREMFYA [Suspect]
     Active Substance: GUSELKUMAB
     Indication: PSORIASIS
     Dosage: SERIAL # 7067959-199
     Route: 058
     Dates: start: 20190611

REACTIONS (19)
  - Disturbance in attention [Unknown]
  - Influenza like illness [Unknown]
  - Blood pressure increased [Unknown]
  - Somnolence [Recovered/Resolved]
  - Dizziness [Unknown]
  - Speech disorder [Unknown]
  - Visual impairment [Unknown]
  - Amnesia [Unknown]
  - Sexual dysfunction [Unknown]
  - Pyrexia [Unknown]
  - Nervous system disorder [Unknown]
  - Fatigue [Unknown]
  - Feeling abnormal [Unknown]
  - Pulse abnormal [Unknown]
  - Mental impairment [Unknown]
  - Headache [Unknown]
  - Tunnel vision [Unknown]
  - Dissociation [Unknown]
  - Clumsiness [Unknown]

NARRATIVE: CASE EVENT DATE: 201906
